FAERS Safety Report 25184081 (Version 1)
Quarter: 2025Q2

REPORT INFORMATION
  Report Type: Spontaneous
  Country: IN (occurrence: IN)
  Receive Date: 20250410
  Receipt Date: 20250410
  Transmission Date: 20250717
  Serious: Yes (Death)
  Sender: MYLAN
  Company Number: IN-MYLANLABS-2025M1030918

PATIENT
  Age: 1 Month
  Sex: Female

DRUGS (8)
  1. EPINEPHRINE [Suspect]
     Active Substance: EPINEPHRINE
     Indication: Resuscitation
  2. EPINEPHRINE [Suspect]
     Active Substance: EPINEPHRINE
     Route: 065
  3. EPINEPHRINE [Suspect]
     Active Substance: EPINEPHRINE
     Route: 065
  4. EPINEPHRINE [Suspect]
     Active Substance: EPINEPHRINE
  5. EPHEDRINE [Concomitant]
     Active Substance: EPHEDRINE
     Indication: Blood pressure systolic decreased
  6. EPHEDRINE [Concomitant]
     Active Substance: EPHEDRINE
     Route: 065
  7. EPHEDRINE [Concomitant]
     Active Substance: EPHEDRINE
     Route: 065
  8. EPHEDRINE [Concomitant]
     Active Substance: EPHEDRINE

REACTIONS (1)
  - Drug ineffective [Fatal]
